FAERS Safety Report 12280522 (Version 1)
Quarter: 2016Q2

REPORT INFORMATION
  Report Type: Spontaneous
  Country: US (occurrence: None)
  Receive Date: 20160418
  Receipt Date: 20160418
  Transmission Date: 20160815
  Serious: Yes (Other)
  Sender: FDA-Public Use
  Company Number: None

PATIENT
  Age: 76 Year
  Sex: Female
  Weight: 72.58 kg

DRUGS (3)
  1. 1 A DAY VITAMIN [Concomitant]
     Active Substance: VITAMINS
  2. TOPROL XL [Suspect]
     Active Substance: METOPROLOL SUCCINATE
     Indication: HYPERTENSION
     Dosage: 50 MG 1 TABLET DAILY WITH EVENING MEAL MOUTH
     Route: 048
     Dates: start: 20160313, end: 20160317
  3. TOPROL XL [Suspect]
     Active Substance: METOPROLOL SUCCINATE
     Indication: HEART RATE INCREASED
     Dosage: 50 MG 1 TABLET DAILY WITH EVENING MEAL MOUTH
     Route: 048
     Dates: start: 20160313, end: 20160317

REACTIONS (7)
  - Hypertension [None]
  - Dizziness [None]
  - Musculoskeletal pain [None]
  - Neck pain [None]
  - Headache [None]
  - Nausea [None]
  - Product quality issue [None]

NARRATIVE: CASE EVENT DATE: 20160313
